FAERS Safety Report 22021020 (Version 1)
Quarter: 2023Q1

REPORT INFORMATION
  Report Type: Report from Study
  Country: NL (occurrence: NL)
  Receive Date: 20230222
  Receipt Date: 20230222
  Transmission Date: 20230418
  Serious: Yes (Other)
  Sender: FDA-Public Use
  Company Number: NL-GILEAD-2023-0613133

PATIENT
  Sex: Female

DRUGS (3)
  1. AZACITIDINE [Suspect]
     Active Substance: AZACITIDINE
     Indication: Acute myeloid leukaemia
     Dosage: UNK
     Route: 065
  2. VENETOCLAX [Suspect]
     Active Substance: VENETOCLAX
     Indication: Acute myeloid leukaemia
     Dosage: UNK
     Route: 065
  3. MAGROLIMAB [Suspect]
     Active Substance: MAGROLIMAB
     Indication: Acute myeloid leukaemia
     Dosage: UNK
     Route: 065
     Dates: start: 20230105

REACTIONS (3)
  - Anaemia [Unknown]
  - Infusion related reaction [Unknown]
  - Drug ineffective [Unknown]

NARRATIVE: CASE EVENT DATE: 20230101
